FAERS Safety Report 10422910 (Version 2)
Quarter: 2014Q3

REPORT INFORMATION
  Report Type: Other
  Country: FR (occurrence: FR)
  Receive Date: 20140902
  Receipt Date: 20140902
  Transmission Date: 20150326
  Serious: Yes (Death, Life-Threatening)
  Sender: FDA-Public Use
  Company Number: FR-AUROBINDO-AUR-APL-2013-10260

PATIENT
  Age: 83 Year
  Sex: Female

DRUGS (8)
  1. BISOPROLOL 10 MG [Suspect]
     Active Substance: BISOPROLOL
     Indication: HYPERTENSION
     Dosage: 10 MG,ONCE A DAY,
     Route: 048
     Dates: end: 20130730
  2. KARDEGIC [Concomitant]
     Active Substance: ASPIRIN LYSINE
     Indication: ANGINA PECTORIS
     Dosage: 75 MG,ONCE A DAY,
     Route: 048
     Dates: start: 20130412
  3. TAHOR [Suspect]
     Active Substance: ATORVASTATIN CALCIUM
     Indication: HYPERCHOLESTEROLAEMIA
     Dosage: 80 MG,ONCE A DAY,
     Route: 048
     Dates: start: 20130412, end: 20130730
  4. LEVOTHYROX [Concomitant]
     Active Substance: LEVOTHYROXINE
     Indication: HYPOTHYROIDISM
     Dosage: 75 ?G,ONCE A DAY,
     Route: 048
  5. PLAVIX [Suspect]
     Active Substance: CLOPIDOGREL BISULFATE
     Indication: PRODUCT USED FOR UNKNOWN INDICATION
     Dosage: 75 MG,ONCE A DAY,
     Route: 048
     Dates: start: 20130412, end: 20130730
  6. ADANCOR [Suspect]
     Active Substance: NICORANDIL
     Indication: ANGINA PECTORIS
     Dosage: 10 MG,TWO TIMES A DAY,
     Route: 048
     Dates: start: 20130412, end: 20130730
  7. BIPRETERAX                         /01421201/ [Suspect]
     Active Substance: INDAPAMIDE\PERINDOPRIL ERBUMINE
     Indication: HYPERTENSION
     Dosage: 5MG/1.25MG, ONCE A DAY
     Route: 048
     Dates: start: 20130525, end: 20130730
  8. FLODIL /00646501/ [Suspect]
     Active Substance: FELODIPINE
     Indication: HYPERTENSION
     Dosage: 5 MG,ONCE A DAY,
     Route: 048
     Dates: start: 20130525, end: 20130730

REACTIONS (6)
  - Weight decreased [Recovered/Resolved]
  - Transaminases increased [Recovered/Resolved]
  - Gamma-glutamyltransferase increased [Recovered/Resolved]
  - Pruritus [Recovered/Resolved]
  - Jaundice cholestatic [Recovered/Resolved]
  - Decreased appetite [Recovered/Resolved]

NARRATIVE: CASE EVENT DATE: 20130726
